FAERS Safety Report 9786445 (Version 2)
Quarter: 2013Q4

REPORT INFORMATION
  Report Type: Report from Study
  Country: CA (occurrence: CA)
  Receive Date: 20131227
  Receipt Date: 20131227
  Transmission Date: 20140711
  Serious: Yes (Hospitalization)
  Sender: FDA-Public Use
  Company Number: CA-UCBSA-106780

PATIENT
  Age: 43 Year
  Sex: Female
  Weight: 55 kg

DRUGS (5)
  1. CIMZIA [Suspect]
     Indication: RHEUMATOID ARTHRITIS
     Route: 058
     Dates: start: 20130413, end: 20131127
  2. CIMZIA [Suspect]
     Indication: RHEUMATOID ARTHRITIS
     Dosage: DOSE: 400 MG EVERY 2 WEEKS FOR 3
     Route: 058
     Dates: start: 20130302, end: 20130330
  3. FOLIC ACID [Concomitant]
     Indication: SUPPLEMENTATION THERAPY
     Dosage: DOSE: 5 MG 4/7 DAYS
     Route: 048
     Dates: start: 2012
  4. MTX [Concomitant]
     Indication: RHEUMATOID ARTHRITIS
     Route: 058
     Dates: start: 2012
  5. PREMARIN [Concomitant]
     Indication: SUPPLEMENTATION THERAPY
     Route: 048

REACTIONS (1)
  - Cystitis [Not Recovered/Not Resolved]
